FAERS Safety Report 6093017-5 (Version None)
Quarter: 2009Q1

REPORT INFORMATION
  Report Type: 
  Country: None (occurrence: None)
  Receive Date: 20090224
  Receipt Date: 20090211
  Transmission Date: 20090719
  Serious: Yes (Hospitalization)
  Sender: FDA-Public Use
  Company Number: 231608K09USA

PATIENT
  Age: 51 Year
  Sex: Male

DRUGS (1)
  1. REBIF [Suspect]
     Indication: MULTIPLE SCLEROSIS
     Dosage: SUBCUTANEOUS
     Route: 058
     Dates: start: 20070612, end: 20081201

REACTIONS (9)
  - DEHYDRATION [None]
  - FALL [None]
  - FISTULA [None]
  - HAEMOGLOBIN DECREASED [None]
  - PSEUDOMONAS INFECTION [None]
  - RENAL FAILURE [None]
  - SINUSITIS [None]
  - STAPHYLOCOCCAL INFECTION [None]
  - WOUND INFECTION [None]
